FAERS Safety Report 14334842 (Version 4)
Quarter: 2018Q1

REPORT INFORMATION
  Report Type: Report from Study
  Country: None (occurrence: TN)
  Receive Date: 20171228
  Receipt Date: 20180216
  Transmission Date: 20180509
  Serious: Yes (Hospitalization, Other)
  Sender: FDA-Public Use
  Company Number: TN-ABBVIE-17K-160-2205180-00

PATIENT
  Age: 58 Year
  Sex: Female
  Weight: 73 kg

DRUGS (3)
  1. HUMIRA [Suspect]
     Active Substance: ADALIMUMAB
     Indication: CROHN^S DISEASE
     Route: 058
     Dates: start: 20170713, end: 201711
  2. HUMIRA [Suspect]
     Active Substance: ADALIMUMAB
     Route: 058
     Dates: start: 201711
  3. CALCIUM [Concomitant]
     Active Substance: CALCIUM
     Indication: MINERAL DEFICIENCY
     Dates: start: 20171126

REACTIONS (10)
  - Haematemesis [Recovered/Resolved]
  - Laboratory test abnormal [Unknown]
  - Crohn^s disease [Not Recovered/Not Resolved]
  - Immunodeficiency [Recovered/Resolved]
  - Abscess intestinal [Recovered/Resolved]
  - Cholelithiasis [Not Recovered/Not Resolved]
  - Mineral deficiency [Recovered/Resolved]
  - Vomiting [Recovered/Resolved]
  - Gastrointestinal pain [Unknown]
  - Back pain [Not Recovered/Not Resolved]

NARRATIVE: CASE EVENT DATE: 201711
